FAERS Safety Report 22197516 (Version 1)
Quarter: 2023Q2

REPORT INFORMATION
  Report Type: Spontaneous
  Country: GB (occurrence: GB)
  Receive Date: 20230411
  Receipt Date: 20230411
  Transmission Date: 20230722
  Serious: Yes (Disabling, Other)
  Sender: FDA-Public Use
  Company Number: None

PATIENT

DRUGS (1)
  1. VENLAFAXINE [Suspect]
     Active Substance: VENLAFAXINE HYDROCHLORIDE
     Indication: Product used for unknown indication
     Dosage: UNKNOWN
     Route: 065
     Dates: start: 20210701

REACTIONS (16)
  - Withdrawal syndrome [Not Recovered/Not Resolved]
  - Condition aggravated [Unknown]
  - Dizziness [Unknown]
  - Vertigo [Unknown]
  - Electric shock sensation [Unknown]
  - Photophobia [Unknown]
  - Mood swings [Unknown]
  - Crying [Unknown]
  - Dysstasia [Unknown]
  - Syncope [Unknown]
  - Hyperhidrosis [Unknown]
  - Panic attack [Unknown]
  - Anxiety [Unknown]
  - Suicidal ideation [Unknown]
  - Electric shock [Unknown]
  - Vision blurred [Unknown]

NARRATIVE: CASE EVENT DATE: 20230101
